FAERS Safety Report 4314690-5 (Version None)
Quarter: 2004Q1

REPORT INFORMATION
  Report Type: 
  Country: None (occurrence: None)
  Receive Date: 20040310
  Receipt Date: 20030708
  Transmission Date: 20041129
  Serious: Yes (Other)
  Sender: FDA-Public Use
  Company Number: PHBS2003BR14601

PATIENT
  Sex: Female

DRUGS (1)
  1. SANDOSTATIN [Suspect]
     Indication: CARCINOID SYNDROME
     Route: 065
     Dates: start: 19960101

REACTIONS (3)
  - BRONCHOSPASM [None]
  - HEPATIC ARTERY THROMBOSIS [None]
  - HEPATIC PAIN [None]
